FAERS Safety Report 7609693 (Version 7)
Quarter: 2014Q1

REPORT INFORMATION
  Report Type: Report from Study
  Country: DK (occurrence: DK)
  Receive Date: 20100928
  Receipt Date: 20140228
  Transmission Date: 20141002
  Serious: Yes (Hospitalization, Other)
  Sender: FDA-Public Use
  Company Number: DK-JNJFOC-20100906912

PATIENT
  Sex: Male
  Weight: 87.7 kg

DRUGS (2)
  1. REMICADE [Suspect]
     Indication: COLITIS ULCERATIVE
     Route: 042
     Dates: start: 20100106, end: 20100110
  2. HUMIRA [Suspect]
     Indication: COLITIS ULCERATIVE
     Route: 058

REACTIONS (6)
  - Surgery [Unknown]
  - Resection of rectum [Recovered/Resolved]
  - Intestinal anastomosis [Recovered/Resolved]
  - Arthritis reactive [Unknown]
  - Pelvic abscess [Not Recovered/Not Resolved]
  - Abdominal abscess [Recovered/Resolved]
